FAERS Safety Report 5282800-1 (Version None)
Quarter: 2007Q2

REPORT INFORMATION
  Report Type: 
  Country: None (occurrence: None)
  Receive Date: 20070402
  Receipt Date: 20070319
  Transmission Date: 20071010
  Serious: Yes (Hospitalization)
  Sender: FDA-Public Use
  Company Number: JP-JNJFOC-20061203296

PATIENT
  Sex: Female

DRUGS (14)
  1. REMICADE [Suspect]
     Route: 042
  2. REMICADE [Suspect]
     Indication: RHEUMATOID ARTHRITIS
     Dosage: 3.0 MG/KG, INITIATED ON 01-SEP-2005, FOLLOWED BY 4 INFUSIONS ON UNKNOWN DATES
     Route: 042
  3. AMLODIN [Suspect]
     Indication: HYPERTENSION
     Route: 048
  4. RHEUMATREX [Concomitant]
     Route: 048
  5. RHEUMATREX [Concomitant]
     Indication: RHEUMATOID ARTHRITIS
     Route: 048
  6. ALFAROL [Concomitant]
     Indication: OSTEOPOROSIS
     Route: 048
  7. ZANTAC [Concomitant]
     Indication: GASTRIC DISORDER
     Route: 048
  8. VOLTAREN [Concomitant]
     Indication: RHEUMATOID ARTHRITIS
     Route: 048
  9. KELNAC [Concomitant]
     Indication: GASTRIC DISORDER
     Dosage: 3 CAPS DAILY
     Route: 048
  10. FOLIAMIN [Concomitant]
     Indication: RHEUMATOID ARTHRITIS
     Route: 048
  11. ISOTONIC SODIUM CHLORIDE SOLUTION [Concomitant]
     Indication: RHEUMATOID ARTHRITIS
  12. RIMATIL [Concomitant]
     Route: 048
  13. RIMATIL [Concomitant]
     Indication: RHEUMATOID ARTHRITIS
     Route: 048
  14. ASASURFAN [Concomitant]
     Indication: RHEUMATOID ARTHRITIS
     Route: 048

REACTIONS (1)
  - B-CELL LYMPHOMA [None]
